FAERS Safety Report 8859038 (Version 1)
Quarter: 2012Q4

REPORT INFORMATION
  Report Type: Spontaneous
  Country: US (occurrence: None)
  Receive Date: 20121022
  Receipt Date: 20121022
  Transmission Date: 20130627
  Serious: Yes (Other)
  Sender: FDA-Public Use
  Company Number: 2012SP003309

PATIENT
  Age: 40 Year
  Sex: Female
  Weight: 93 kg

DRUGS (5)
  1. FLUOROURACIL (FLUOROURACIL) [Suspect]
     Indication: BREAST CANCER
     Route: 042
     Dates: start: 20120604
  2. EPIRUBICIN (EPIRUBICIN) (EPIRUBICIN) [Suspect]
     Indication: BREAST CANCER
     Route: 042
     Dates: start: 20120604
  3. ADALAT [Concomitant]
  4. ELTROXIN [Concomitant]
  5. SENDOXAN (CYCLOPHOSPHAMIDE) [Suspect]
     Route: 042
     Dates: start: 20120604

REACTIONS (3)
  - Pyrexia [None]
  - Neutrophil count decreased [None]
  - Skin infection [None]
